FAERS Safety Report 23125185 (Version 1)
Quarter: 2023Q4

REPORT INFORMATION
  Report Type: Spontaneous
  Country: GB (occurrence: GB)
  Receive Date: 20231030
  Receipt Date: 20231030
  Transmission Date: 20240109
  Serious: Yes (Other)
  Sender: FDA-Public Use
  Company Number: None

PATIENT
  Sex: Female

DRUGS (3)
  1. CODEINE [Suspect]
     Active Substance: CODEINE
     Indication: Muscle spasms
     Route: 065
     Dates: start: 20230123
  2. DIAZEPAM [Suspect]
     Active Substance: DIAZEPAM
     Indication: Muscle spasms
     Dosage: 2 A DAY
     Route: 065
     Dates: start: 20230123
  3. DIAZEPAM [Suspect]
     Active Substance: DIAZEPAM
     Dosage: 3 A DAY (TOTAL 14 TABLETS)
     Route: 065

REACTIONS (6)
  - Acute psychosis [Unknown]
  - Hallucination, auditory [Unknown]
  - Delusion [Unknown]
  - Anxiety [Unknown]
  - Amnesia [Unknown]
  - Alcohol interaction [Unknown]

NARRATIVE: CASE EVENT DATE: 20230305
